FAERS Safety Report 10062229 (Version 1)
Quarter: 2020Q3

REPORT INFORMATION
  Report Type: Spontaneous
  Country: US (occurrence: US)
  Receive Date: 20140407
  Receipt Date: 20140407
  Transmission Date: 20201104
  Serious: Yes (Hospitalization)
  Sender: FDA-Public Use
  Company Number: US-MYLANLABS-2014S1006896

PATIENT
  Age: 55 Year
  Sex: Female

DRUGS (1)
  1. IBANDRONIC ACID. [Suspect]
     Active Substance: IBANDRONIC ACID
     Dosage: MONTHLY
     Route: 065

REACTIONS (2)
  - Hypokalaemia [Recovered/Resolved]
  - Ventricular arrhythmia [Recovered/Resolved]
